FAERS Safety Report 6565054-5 (Version None)
Quarter: 2010Q1

REPORT INFORMATION
  Report Type: 
  Country: None (occurrence: None)
  Receive Date: 20100201
  Receipt Date: 20100128
  Transmission Date: 20100710
  Serious: Yes (Death)
  Sender: FDA-Public Use
  Company Number: JP-ASTRAZENECA-2010SE03370

PATIENT
  Age: 26567 Day
  Sex: Female
  Weight: 57 kg

DRUGS (4)
  1. ARIMIDEX [Suspect]
     Indication: BREAST CANCER
     Route: 048
     Dates: start: 20060815, end: 20091224
  2. FASTIC [Suspect]
     Indication: DIABETES MELLITUS
     Route: 048
     Dates: start: 20091016, end: 20091224
  3. ACTOS [Suspect]
     Indication: DIABETES MELLITUS
     Route: 048
     Dates: start: 20091016, end: 20091224
  4. RENIVACE [Suspect]
     Indication: HYPERTENSION
     Dosage: 5 MG, DAILY AND DRUG ADMINISTRATION WAS STARTED BEFORE 16-SEP-2009.
     Route: 048
     Dates: end: 20091224

REACTIONS (1)
  - DROWNING [None]
